FAERS Safety Report 10081987 (Version 3)
Quarter: 2014Q2

REPORT INFORMATION
  Report Type: Spontaneous
  Country: PT (occurrence: PT)
  Receive Date: 20140416
  Receipt Date: 20140527
  Transmission Date: 20141212
  Serious: Yes (Hospitalization, Other)
  Sender: FDA-Public Use
  Company Number: PT-GILEAD-2014-0099644

PATIENT
  Age: 30 Year
  Sex: Female

DRUGS (3)
  1. CAYSTON [Suspect]
     Indication: PRODUCT USED FOR UNKNOWN INDICATION
     Dosage: UNK
     Route: 065
     Dates: start: 201308
  2. COLISTIN [Concomitant]
  3. TOBRAMYCINE [Concomitant]

REACTIONS (1)
  - Respiratory disorder [Unknown]
